FAERS Safety Report 6418987-4 (Version None)
Quarter: 2009Q4

REPORT INFORMATION
  Report Type: 
  Country: None (occurrence: None)
  Receive Date: 20091029
  Receipt Date: 20091020
  Transmission Date: 20100525
  Serious: Yes (Other)
  Sender: FDA-Public Use
  Company Number: ES-JNJFOC-20090908543

PATIENT
  Sex: Male
  Weight: 57.5 kg

DRUGS (6)
  1. RISPERDAL [Suspect]
     Route: 048
  2. RISPERDAL [Suspect]
     Route: 048
  3. RISPERDAL [Suspect]
     Indication: PSYCHOTIC DISORDER
     Route: 048
  4. RISPERDAL CONSTA [Suspect]
     Route: 030
     Dates: start: 20090924
  5. RISPERDAL CONSTA [Suspect]
     Indication: PSYCHOTIC DISORDER
     Route: 030
     Dates: start: 20090924
  6. NOCTAMID [Concomitant]
     Route: 048

REACTIONS (1)
  - ARRHYTHMIA [None]
